FAERS Safety Report 14341345 (Version 2)
Quarter: 2018Q1

REPORT INFORMATION
  Report Type: Spontaneous
  Country: LT (occurrence: LT)
  Receive Date: 20180102
  Receipt Date: 20180131
  Transmission Date: 20180509
  Serious: Yes (Life-Threatening, Other)
  Sender: FDA-Public Use
  Company Number: LT-GLENMARK PHARMACEUTICALS-2017GMK030274

PATIENT
  Age: 53 Year
  Sex: Female

DRUGS (13)
  1. TRAMADOL. [Interacting]
     Active Substance: TRAMADOL
     Indication: PAIN PROPHYLAXIS
     Dosage: 100 MG, QD (EVERY 24 HOURS)
     Route: 048
     Dates: start: 2016
  2. ALPRAZOLAM. [Interacting]
     Active Substance: ALPRAZOLAM
     Indication: ANXIETY DISORDER
     Dosage: 0.5 MG, QD (EVERY 24 HOURS)
     Route: 048
     Dates: start: 2016
  3. PEMETREXED. [Interacting]
     Active Substance: PEMETREXED
     Indication: PLEURAL MESOTHELIOMA
     Dosage: II CYCLE; CYCLICAL
     Route: 065
     Dates: start: 201611
  4. CISPLATIN TEVA [Interacting]
     Active Substance: CISPLATIN
     Indication: PLEURAL MESOTHELIOMA
     Dosage: 0.5MG/ML 100ML - II CYCLE (EVERY 24 HOURS)
     Route: 042
     Dates: start: 201611
  5. APREPITANT. [Interacting]
     Active Substance: APREPITANT
     Indication: PROPHYLAXIS
     Dosage: 125 MG, UNK
     Route: 048
     Dates: start: 20161121, end: 20161121
  6. MANNITOL. [Concomitant]
     Active Substance: MANNITOL
     Indication: TOXICITY TO VARIOUS AGENTS
     Dosage: 1000 ML, 10 PROCEDURE
     Route: 042
     Dates: start: 20161121, end: 20161121
  7. DEXAMETHASONE. [Concomitant]
     Active Substance: DEXAMETHASONE
     Indication: DRUG TOLERANCE
     Dosage: 4 MG, UNK
     Route: 048
     Dates: start: 20161120, end: 20161121
  8. BETALOC ZOK [Concomitant]
     Active Substance: METOPROLOL SUCCINATE
     Indication: HYPERTENSION
     Dosage: 47.5 MG, UNK
     Route: 048
     Dates: start: 2016
  9. ONDANSETRON [Suspect]
     Active Substance: ONDANSETRON
     Indication: PROPHYLAXIS
     Dosage: 8 MG, UNK
     Route: 048
     Dates: start: 20161121, end: 20161121
  10. FOLIC ACID. [Concomitant]
     Active Substance: FOLIC ACID
     Indication: PREMEDICATION
     Dosage: 1000 MG, UNK
     Route: 042
     Dates: start: 2016
  11. CYANOCOBALAMIN. [Concomitant]
     Active Substance: CYANOCOBALAMIN
     Indication: PREMEDICATION
     Dosage: 1000 MG, UNK
     Route: 065
     Dates: start: 2016
  12. FENTANYL. [Interacting]
     Active Substance: FENTANYL
     Indication: PAIN PROPHYLAXIS
     Dosage: 75 ?G, EVERY 1 HOUR
     Route: 062
     Dates: start: 2016
  13. TIANEPTINE [Concomitant]
     Active Substance: TIANEPTINE
     Indication: PAIN MANAGEMENT
     Dosage: 12.5 MG, UNK
     Route: 048
     Dates: start: 2016

REACTIONS (8)
  - Anaphylactic reaction [Recovered/Resolved]
  - Drug interaction [Unknown]
  - Hypomagnesaemia [Unknown]
  - Cardiotoxicity [Recovered/Resolved]
  - Sudden cardiac death [Recovered/Resolved]
  - Haemodynamic instability [Recovered/Resolved]
  - Hypersensitivity [Recovered/Resolved]
  - Toxicity to various agents [Unknown]

NARRATIVE: CASE EVENT DATE: 2016
